FAERS Safety Report 18582977 (Version 1)
Quarter: 2020Q4

REPORT INFORMATION
  Report Type: Spontaneous
  Country: US (occurrence: US)
  Receive Date: 20201206
  Receipt Date: 20201206
  Transmission Date: 20210114
  Serious: No
  Sender: FDA-Public Use
  Company Number: US-LUPIN PHARMACEUTICALS INC.-2020-03637

PATIENT
  Age: 21 Year
  Sex: Female

DRUGS (3)
  1. LAMOTRIGINE. [Interacting]
     Active Substance: LAMOTRIGINE
     Indication: EPILEPSY
     Dosage: (250MG-275MG) DAILY
     Route: 065
  2. NORGESTIMATE AND ETHINYL ESTRADIOL [Suspect]
     Active Substance: ETHINYL ESTRADIOL\NORGESTIMATE
     Indication: HORMONAL CONTRACEPTION
     Dosage: (35MICROG/150MICROG) USED FOR THREE CONSECUTIVE WEEKS (ACTIVE PHASE) FOLLOWED BY A WEEK OFF (TRANSDE
     Route: 062
  3. LEVETIRACETAM. [Concomitant]
     Active Substance: LEVETIRACETAM
     Indication: EPILEPSY
     Route: 065

REACTIONS (2)
  - Anticonvulsant drug level decreased [Unknown]
  - Drug interaction [Unknown]
